FAERS Safety Report 8284495-1 (Version None)
Quarter: 2012Q2

REPORT INFORMATION
  Report Type: 
  Country: None (occurrence: None)
  Receive Date: 20120413
  Receipt Date: 20111103
  Transmission Date: 20120825
  Serious: No
  Sender: FDA-Public Use
  Company Number: US-ASTRAZENECA-2011SE61662

PATIENT
  Age: 71 Year
  Sex: Male

DRUGS (31)
  1. STOOL SOFTENER [Concomitant]
  2. CYBALTAL [Concomitant]
  3. LARATADINE [Concomitant]
  4. ULORIC [Concomitant]
  5. ATROVENT [Concomitant]
  6. CAPTOPRIL [Concomitant]
  7. FERROUS GLUCONATE [Concomitant]
  8. FUROSEMIDE [Concomitant]
  9. INSULIN NPH NOVOLIN N [Concomitant]
  10. METOPROLOL TARTRATE [Concomitant]
  11. NUCYNTA [Concomitant]
  12. CRANBERRY CONCENTRATE [Concomitant]
  13. LIDOCAIN PATCH [Concomitant]
  14. AMLODIPINE [Concomitant]
  15. ADOVERT [Concomitant]
  16. CLONAZEPAM [Concomitant]
  17. INSULIN NOVOLOG [Concomitant]
  18. NITROGLYCERIN [Concomitant]
  19. CARAFATE [Concomitant]
  20. CHOLESTYRAM [Concomitant]
  21. LORTAB [Concomitant]
  22. NEXIUM [Suspect]
     Route: 048
  23. CILOSTAZOL [Concomitant]
  24. MULTI-VITAMIN [Concomitant]
  25. ALBUTEROL [Concomitant]
  26. ATORVASTATIN CALCIUM [Concomitant]
  27. CALCIUM GLUCONATE [Concomitant]
  28. LANTUS [Concomitant]
  29. LOVANZA [Concomitant]
  30. NIASPAN [Concomitant]
  31. PROVINTIL [Concomitant]

REACTIONS (2)
  - GASTRIC ULCER [None]
  - MALAISE [None]
